FAERS Safety Report 6356295-0 (Version None)
Quarter: 2009Q3

REPORT INFORMATION
  Report Type: 
  Country: None (occurrence: None)
  Receive Date: 20090914
  Receipt Date: 20090914
  Transmission Date: 20100115
  Serious: No
  Sender: FDA-Public Use
  Company Number: None

PATIENT
  Age: 57 Year
  Sex: Female
  Weight: 68.0396 kg

DRUGS (1)
  1. ZICAM NASAL GEL ZICAM LLC [Suspect]
     Indication: NASOPHARYNGITIS
     Dosage: ONE SQUIRT EVERY 4 HOURS NASAL
     Route: 045
     Dates: start: 20071225, end: 20071230

REACTIONS (1)
  - HYPOSMIA [None]
